FAERS Safety Report 10069652 (Version 1)
Quarter: 2014Q2

REPORT INFORMATION
  Report Type: Spontaneous
  Country: US (occurrence: US)
  Receive Date: 20140410
  Receipt Date: 20140410
  Transmission Date: 20141212
  Serious: Yes (Hospitalization)
  Sender: FDA-Public Use
  Company Number: US-JNJFOC-20140319375

PATIENT
  Sex: Male

DRUGS (3)
  1. TYLENOL UNSPECIFIED [Suspect]
     Route: 065
  2. TYLENOL UNSPECIFIED [Suspect]
     Indication: PAIN MANAGEMENT
     Route: 065
  3. ANDROGEL [Suspect]
     Indication: BLOOD TESTOSTERONE DECREASED
     Dosage: 1 PACKET
     Route: 061
     Dates: start: 2004

REACTIONS (2)
  - Renal impairment [Unknown]
  - Hepatic enzyme increased [Unknown]
